FAERS Safety Report 18078303 (Version 1)
Quarter: 2020Q3

REPORT INFORMATION
  Report Type: Spontaneous
  Country: AU (occurrence: AU)
  Receive Date: 20200728
  Receipt Date: 20200728
  Transmission Date: 20201103
  Serious: Yes (Other)
  Sender: FDA-Public Use
  Company Number: AU-SUN PHARMACEUTICAL INDUSTRIES LTD-2020RR-255243

PATIENT
  Age: 61 Year
  Sex: Male

DRUGS (19)
  1. LORATADINE. [Suspect]
     Active Substance: LORATADINE
     Indication: DYSPNOEA
  2. SALBUTAMOL [Suspect]
     Active Substance: ALBUTEROL
     Indication: WHEEZING
     Dosage: NEBULIZED
     Route: 055
  3. PARACETAMOL [Suspect]
     Active Substance: ACETAMINOPHEN
     Indication: WHEEZING
  4. LORATADINE. [Suspect]
     Active Substance: LORATADINE
     Indication: CHEST DISCOMFORT
     Route: 065
  5. LORATADINE. [Suspect]
     Active Substance: LORATADINE
     Indication: WHEEZING
  6. CARBOPLATIN. [Suspect]
     Active Substance: CARBOPLATIN
     Indication: SQUAMOUS CELL CARCINOMA
     Dosage: EVERY 3 WEEKS, 5 CYCLES
     Route: 065
  7. PACLITAXEL. [Suspect]
     Active Substance: PACLITAXEL
     Indication: SQUAMOUS CELL CARCINOMA
     Dosage: EVERY 3 WEEKS, 5 CYCLES
     Route: 065
  8. PARACETAMOL [Suspect]
     Active Substance: ACETAMINOPHEN
     Indication: FLUSHING
  9. RANITIDINE. [Suspect]
     Active Substance: RANITIDINE
     Indication: TACHYCARDIA
  10. RANITIDINE. [Suspect]
     Active Substance: RANITIDINE
     Indication: PYREXIA
  11. PARACETAMOL [Suspect]
     Active Substance: ACETAMINOPHEN
     Indication: DYSPNOEA
  12. RANITIDINE. [Suspect]
     Active Substance: RANITIDINE
     Indication: CHILLS
     Route: 065
  13. RANITIDINE. [Suspect]
     Active Substance: RANITIDINE
     Indication: HYPERTENSION
  14. HYDROCORTISONE. [Suspect]
     Active Substance: HYDROCORTISONE
     Indication: WHEEZING
  15. HYDROCORTISONE. [Suspect]
     Active Substance: HYDROCORTISONE
     Indication: FLUSHING
  16. LORATADINE. [Suspect]
     Active Substance: LORATADINE
     Indication: FLUSHING
  17. PARACETAMOL [Suspect]
     Active Substance: ACETAMINOPHEN
     Indication: CHEST DISCOMFORT
     Dosage: UNK
     Route: 065
  18. HYDROCORTISONE. [Suspect]
     Active Substance: HYDROCORTISONE
     Indication: CHEST DISCOMFORT
     Route: 065
  19. HYDROCORTISONE. [Suspect]
     Active Substance: HYDROCORTISONE
     Indication: DYSPNOEA

REACTIONS (4)
  - Drug ineffective [Unknown]
  - Therapeutic product effect incomplete [Unknown]
  - Weight decreased [Unknown]
  - Lethargy [Unknown]
